FAERS Safety Report 11282089 (Version 4)
Quarter: 2015Q4

REPORT INFORMATION
  Report Type: Spontaneous
  Country: BR (occurrence: BR)
  Receive Date: 20150719
  Receipt Date: 20151104
  Transmission Date: 20160304
  Serious: Yes (Other)
  Sender: FDA-Public Use
  Company Number: BR-ABBVIE-15P-020-1428958-00

PATIENT
  Age: 3 Year
  Sex: Male
  Weight: 13 kg

DRUGS (2)
  1. DEPAKOTE [Suspect]
     Active Substance: DIVALPROEX SODIUM
     Indication: PRODUCT USED FOR UNKNOWN INDICATION
     Dosage: IN HOSPITAL: DAILY DOSE: 1000 MG
     Route: 050
  2. DEPAKOTE [Suspect]
     Active Substance: DIVALPROEX SODIUM
     Dosage: AT HOME WITH PAPAYA
     Route: 048

REACTIONS (5)
  - Incorrect dose administered by device [Unknown]
  - Off label use [Unknown]
  - Seizure [Unknown]
  - Device occlusion [Unknown]
  - Incorrect route of drug administration [Unknown]
